FAERS Safety Report 5740005-1 (Version None)
Quarter: 2008Q2

REPORT INFORMATION
  Report Type: 
  Country: None (occurrence: None)
  Receive Date: 20080516
  Receipt Date: 20080507
  Transmission Date: 20081010
  Serious: Yes (Hospitalization, Other)
  Sender: FDA-Public Use
  Company Number: CA-AMGEN-KDL251651

PATIENT
  Sex: Female

DRUGS (1)
  1. ENBREL [Suspect]
     Indication: RHEUMATOID ARTHRITIS
     Route: 058
     Dates: start: 20070727, end: 20071218

REACTIONS (3)
  - PERIPHERAL SENSORY NEUROPATHY [None]
  - RHEUMATOID ARTHRITIS [None]
  - SHOULDER ARTHROPLASTY [None]
